FAERS Safety Report 15133996 (Version 2)
Quarter: 2018Q3

REPORT INFORMATION
  Report Type: Report from Study
  Country: US (occurrence: US)
  Receive Date: 20180712
  Receipt Date: 20180717
  Transmission Date: 20181010
  Serious: Yes (Hospitalization)
  Sender: FDA-Public Use
  Company Number: US-UNITED THERAPEUTICS-UNT-2018-009677

PATIENT
  Sex: Female

DRUGS (1)
  1. TREPROSTINIL SODIUM (IV) [Suspect]
     Active Substance: TREPROSTINIL SODIUM
     Indication: PULMONARY ARTERIAL HYPERTENSION
     Dosage: 0.07 ?G/KG, CONTINUING
     Route: 041
     Dates: start: 20180202

REACTIONS (4)
  - Chest pain [Unknown]
  - Localised infection [Unknown]
  - Abscess limb [Unknown]
  - Fluid overload [Unknown]

NARRATIVE: CASE EVENT DATE: 2018
